FAERS Safety Report 13524880 (Version 1)
Quarter: 2017Q2

REPORT INFORMATION
  Report Type: Spontaneous
  Country: US (occurrence: US)
  Receive Date: 20170508
  Receipt Date: 20170508
  Transmission Date: 20170830
  Serious: No
  Sender: FDA-Public Use
  Company Number: US-ROCHE-1126636

PATIENT
  Sex: Female

DRUGS (9)
  1. AVASTIN [Suspect]
     Active Substance: BEVACIZUMAB
     Route: 065
     Dates: start: 20081106
  2. AVASTIN [Suspect]
     Active Substance: BEVACIZUMAB
     Route: 065
     Dates: start: 20081204
  3. AVASTIN [Suspect]
     Active Substance: BEVACIZUMAB
     Indication: OVARIAN CANCER
     Dosage: LAST DOSE 15 JAN 2009
     Route: 065
     Dates: start: 20081009
  4. AVASTIN [Suspect]
     Active Substance: BEVACIZUMAB
     Route: 065
     Dates: start: 20081120
  5. AVASTIN [Suspect]
     Active Substance: BEVACIZUMAB
     Route: 065
     Dates: start: 20090115
  6. TAXOL [Concomitant]
     Active Substance: PACLITAXEL
     Route: 042
  7. AVASTIN [Suspect]
     Active Substance: BEVACIZUMAB
     Indication: MALIGNANT NEOPLASM OF UTERINE ADNEXA
     Route: 065
     Dates: start: 20081023
  8. AVASTIN [Suspect]
     Active Substance: BEVACIZUMAB
     Route: 065
     Dates: start: 20090102
  9. CARBOPLATIN. [Concomitant]
     Active Substance: CARBOPLATIN
     Route: 042

REACTIONS (2)
  - Pyrexia [Unknown]
  - Hypertension [Unknown]
